FAERS Safety Report 5177081-3 (Version None)
Quarter: 2006Q4

REPORT INFORMATION
  Report Type: 
  Country: None (occurrence: None)
  Receive Date: 20061207
  Receipt Date: 20061127
  Transmission Date: 20070319
  Serious: Yes (Other)
  Sender: FDA-Public Use
  Company Number: 224624

PATIENT
  Age: 58 Year
  Sex: Female

DRUGS (1)
  1. RAPTIVA [Suspect]
     Indication: PSORIASIS
     Dosage: 80 MG, 1/WEEK
     Dates: start: 20060701

REACTIONS (5)
  - APHTHOUS STOMATITIS [None]
  - GASTRIC BYPASS [None]
  - MOUTH ULCERATION [None]
  - SINUSITIS [None]
  - VAGINAL ULCERATION [None]
